FAERS Safety Report 21414226 (Version 1)
Quarter: 2022Q4

REPORT INFORMATION
  Report Type: Spontaneous
  Country: IE (occurrence: IE)
  Receive Date: 20221006
  Receipt Date: 20221006
  Transmission Date: 20230112
  Serious: Yes (Other)
  Sender: FDA-Public Use
  Company Number: IE-COLLEGIUM PHARMACEUTICAL, INC.-20220900298

PATIENT

DRUGS (1)
  1. NUCYNTA [Suspect]
     Active Substance: TAPENTADOL HYDROCHLORIDE
     Indication: Migraine
     Dosage: 7 DOSAGE FORM, 1/DAY
     Route: 065

REACTIONS (3)
  - Drug diversion [Unknown]
  - Drug dependence [Unknown]
  - Intentional product use issue [Unknown]
